FAERS Safety Report 16778049 (Version 1)
Quarter: 2019Q3

REPORT INFORMATION
  Report Type: Report from Study
  Country: JP (occurrence: JP)
  Receive Date: 20190905
  Receipt Date: 20190905
  Transmission Date: 20191005
  Serious: Yes (Hospitalization)
  Sender: FDA-Public Use
  Company Number: JP-BIOCODEX SA-201901091

PATIENT
  Age: 16 Year
  Sex: Female

DRUGS (25)
  1. CLOBAZAM. [Concomitant]
     Active Substance: CLOBAZAM
     Dosage: 10 MG, QD
     Route: 048
     Dates: start: 20141208, end: 20150407
  2. SODIUM VALPROATE [Suspect]
     Active Substance: VALPROATE SODIUM
     Dosage: 320 MG, QD
     Route: 048
     Dates: start: 20130912, end: 20131218
  3. CLOBAZAM. [Concomitant]
     Active Substance: CLOBAZAM
     Dosage: 19 MG, QD
     Route: 048
     Dates: start: 20160106
  4. LEVOCARNITINE. [Concomitant]
     Active Substance: LEVOCARNITINE
     Indication: HYPERAMMONAEMIA
     Dosage: 1800 MG, QD
     Route: 048
     Dates: start: 20131218, end: 20140107
  5. DIACOMIT [Suspect]
     Active Substance: STIRIPENTOL
     Dosage: 2000 MG, QD
     Route: 048
     Dates: start: 20130828
  6. SODIUM VALPROATE [Suspect]
     Active Substance: VALPROATE SODIUM
     Dosage: 650 MG, QD
     Route: 048
     Dates: end: 20121205
  7. SODIUM VALPROATE [Suspect]
     Active Substance: VALPROATE SODIUM
     Dosage: 500 MG, QD
     Route: 048
     Dates: start: 20150812
  8. CLOBAZAM. [Concomitant]
     Active Substance: CLOBAZAM
     Dosage: 12 MG, QD
     Route: 048
     Dates: start: 20150408, end: 20150811
  9. CLOBAZAM. [Concomitant]
     Active Substance: CLOBAZAM
     Dosage: 15 MG, QD
     Route: 048
     Dates: start: 20150916, end: 20151110
  10. CLOBAZAM. [Concomitant]
     Active Substance: CLOBAZAM
     Dosage: 17 MG, QD
     Route: 048
     Dates: start: 20151111, end: 20160105
  11. LEVETIRACETAM. [Concomitant]
     Active Substance: LEVETIRACETAM
     Dosage: 1000 MG, QD
     Route: 048
     Dates: start: 20131205, end: 20140305
  12. LEVETIRACETAM. [Concomitant]
     Active Substance: LEVETIRACETAM
     Dosage: 1500 MG, QD
     Route: 048
     Dates: start: 20140306
  13. SODIUM VALPROATE [Suspect]
     Active Substance: VALPROATE SODIUM
     Dosage: 600 MG, QD
     Route: 048
     Dates: start: 20140109, end: 20150811
  14. LEVETIRACETAM. [Concomitant]
     Active Substance: LEVETIRACETAM
     Indication: EPILEPSY
     Dosage: 500 MG, QD
     Route: 048
     Dates: start: 20131009, end: 20131204
  15. LEVOCARNITINE. [Concomitant]
     Active Substance: LEVOCARNITINE
     Dosage: 3600 MG, QD
     Route: 048
     Dates: start: 20150527, end: 20150610
  16. DIACOMIT [Suspect]
     Active Substance: STIRIPENTOL
     Indication: SEVERE MYOCLONIC EPILEPSY OF INFANCY
     Dosage: 1750 MG, QD
     Route: 048
     Dates: start: 20130130, end: 20130827
  17. SODIUM VALPROATE [Suspect]
     Active Substance: VALPROATE SODIUM
     Dosage: 625 MG, QD
     Route: 048
     Dates: start: 20121206, end: 20130828
  18. CLOBAZAM. [Concomitant]
     Active Substance: CLOBAZAM
     Dosage: 13 MG, QD
     Route: 048
     Dates: start: 20150812, end: 20150915
  19. LEVOCARNITINE. [Concomitant]
     Active Substance: LEVOCARNITINE
     Dosage: 2400 MG, QD
     Route: 048
     Dates: start: 20140108, end: 20150512
  20. SODIUM VALPROATE [Suspect]
     Active Substance: VALPROATE SODIUM
     Dosage: 400 MG, QD
     Route: 048
     Dates: start: 20130829, end: 20130911
  21. SODIUM VALPROATE [Suspect]
     Active Substance: VALPROATE SODIUM
     Dosage: 480 MG, QD
     Route: 048
     Dates: start: 20131219, end: 20140108
  22. CLOBAZAM. [Concomitant]
     Active Substance: CLOBAZAM
     Indication: SEVERE MYOCLONIC EPILEPSY OF INFANCY
     Dosage: 6 MG, QD
     Route: 048
     Dates: end: 20141207
  23. SODIUM VALPROATE [Suspect]
     Active Substance: VALPROATE SODIUM
     Indication: SEVERE MYOCLONIC EPILEPSY OF INFANCY
     Dosage: 630 MG, QD
     Route: 048
  24. LEVOCARNITINE. [Concomitant]
     Active Substance: LEVOCARNITINE
     Dosage: 3000 MG, QD
     Route: 048
     Dates: start: 20150513, end: 20150526
  25. LEVOCARNITINE. [Concomitant]
     Active Substance: LEVOCARNITINE
     Dosage: 3000 MG, QD
     Route: 048
     Dates: start: 20150611

REACTIONS (2)
  - Hyperventilation [Recovered/Resolved]
  - Hypoaesthesia [Unknown]

NARRATIVE: CASE EVENT DATE: 20151217
